FAERS Safety Report 17525114 (Version 1)
Quarter: 2020Q1

REPORT INFORMATION
  Report Type: Spontaneous
  Country: HU (occurrence: HU)
  Receive Date: 20200310
  Receipt Date: 20200310
  Transmission Date: 20200409
  Serious: Yes (Other)
  Sender: FDA-Public Use
  Company Number: HU-BAUSCH-BL-2020-006330

PATIENT
  Age: 47 Year
  Sex: Male

DRUGS (6)
  1. DALACIN [Suspect]
     Active Substance: CLINDAMYCIN
     Indication: PYREXIA
     Route: 065
  2. ROCEPHIN [Suspect]
     Active Substance: CEFTRIAXONE SODIUM
     Indication: PYREXIA
     Route: 065
  3. DALACIN [Suspect]
     Active Substance: CLINDAMYCIN
     Route: 065
  4. TAZOCIN [Concomitant]
     Active Substance: PIPERACILLIN SODIUM\TAZOBACTAM SODIUM
     Indication: PRODUCT USED FOR UNKNOWN INDICATION
  5. GENTAMICIN. [Suspect]
     Active Substance: GENTAMICIN
     Indication: PYREXIA
     Route: 065
  6. METRONIDAZOLE. [Concomitant]
     Active Substance: METRONIDAZOLE
     Indication: PRODUCT USED FOR UNKNOWN INDICATION

REACTIONS (8)
  - Prothrombin level increased [Unknown]
  - Pathogen resistance [Unknown]
  - Platelet count decreased [Unknown]
  - Blood culture positive [Unknown]
  - Liver abscess [Recovered/Resolved]
  - Gallbladder oedema [Recovered/Resolved]
  - Bacterial infection [Unknown]
  - Pyrexia [Recovered/Resolved]
